FAERS Safety Report 4835180-7 (Version None)
Quarter: 2005Q4

REPORT INFORMATION
  Report Type: 
  Country: None (occurrence: None)
  Receive Date: 20051114
  Receipt Date: 20050927
  Transmission Date: 20060501
  Serious: Yes (Death, Life-Threatening, Hospitalization, Other)
  Sender: FDA-Public Use
  Company Number: 2005BH002150

PATIENT
  Age: 24 Year
  Sex: Female

DRUGS (10)
  1. ATIVAN [Suspect]
     Indication: SEDATION
     Dosage: 50 MG; EVERY HR; IV
     Route: 042
  2. FENTANYL [Concomitant]
  3. NIMBEX [Concomitant]
  4. LEVOFLOXACIN [Concomitant]
  5. AZITHROMYCIN [Concomitant]
  6. CEFTRIAXONE [Concomitant]
  7. VANCOMYCIN [Concomitant]
  8. FAMOTIDINE [Concomitant]
  9. HEPARIN [Concomitant]
  10. DOCUSATE [Concomitant]

REACTIONS (12)
  - AGITATION [None]
  - BLOOD PRESSURE SYSTOLIC DECREASED [None]
  - CARDIAC ARREST [None]
  - DRUG TOXICITY [None]
  - LACTIC ACIDOSIS [None]
  - METABOLIC ACIDOSIS [None]
  - PNEUMONIA [None]
  - PNEUMOTHORAX [None]
  - PYREXIA [None]
  - RESPIRATORY FAILURE [None]
  - TACHYCARDIA [None]
  - URINE OUTPUT DECREASED [None]
